FAERS Safety Report 5206843-9 (Version None)
Quarter: 2006Q4

REPORT INFORMATION
  Report Type: 
  Country: None (occurrence: None)
  Receive Date: 20061026
  Receipt Date: 20060822
  Transmission Date: 20070319
  Serious: No
  Sender: FDA-Public Use
  Company Number: 2006103189

PATIENT
  Age: 69 Year
  Sex: Male
  Weight: 74.8435 kg

DRUGS (7)
  1. LYRICA [Suspect]
     Indication: NERVE INJURY
     Dosage: 75 MG (75 MG, 2 IN 1 D)
     Dates: start: 20060801
  2. ENALAPRIL MALEATE [Concomitant]
  3. METOPROLOL TARTRATE [Concomitant]
  4. NASONEX [Concomitant]
  5. ACETYLSALICYLIC ACID [Concomitant]
  6. PLAVIX [Concomitant]
  7. ZETIA [Concomitant]

REACTIONS (3)
  - DIZZINESS [None]
  - LIMB DISCOMFORT [None]
  - SOMNOLENCE [None]
